FAERS Safety Report 7542236-7 (Version None)
Quarter: 2011Q2

REPORT INFORMATION
  Report Type: 
  Country: None (occurrence: None)
  Receive Date: 20110613
  Receipt Date: 20110607
  Transmission Date: 20111010
  Serious: Yes (Death)
  Sender: FDA-Public Use
  Company Number: AT-PFIZER INC-2011124277

PATIENT
  Age: 43 Year
  Sex: Female
  Weight: 67.4 kg

DRUGS (28)
  1. TAZONAM [Concomitant]
     Indication: PYREXIA
     Dosage: 4.5 MG, UNK
     Route: 042
     Dates: start: 20110519
  2. ENTOCORT EC [Concomitant]
     Indication: GRAFT VERSUS HOST DISEASE
     Dosage: UNK
     Route: 048
     Dates: start: 20110531
  3. ZYVOX [Concomitant]
     Indication: ANTIBIOTIC PROPHYLAXIS
     Dosage: 600 MG, 2X/DAY
     Route: 042
     Dates: start: 20110531
  4. ANIDULAFUNGIN [Suspect]
     Dosage: 200 MG, 1X/DAY
     Dates: start: 20110527, end: 20110527
  5. ADVANTAN [Concomitant]
     Indication: GRAFT VERSUS HOST DISEASE
     Dosage: UNK
     Route: 061
     Dates: start: 20110512
  6. FAMVIR [Concomitant]
     Indication: PROPHYLAXIS
     Dosage: 500 MG, 2X/DAY
     Route: 048
     Dates: start: 20110406, end: 20110520
  7. DARAPRIM [Concomitant]
     Indication: PROPHYLAXIS
     Dosage: 25 MG, 2X/DAY
     Route: 048
     Dates: start: 20110416, end: 20110517
  8. CIPROFLOXACIN [Concomitant]
     Indication: DIARRHOEA
     Dosage: 500 MG, 2X/DAY
     Route: 048
     Dates: start: 20110406, end: 20110520
  9. ZOVIRAX [Concomitant]
     Indication: PROPHYLAXIS
     Dosage: UNK
     Route: 042
     Dates: start: 20110521
  10. OPTINEM [Concomitant]
     Indication: PYREXIA
     Dosage: 1 G, UNK
     Route: 042
     Dates: start: 20110527
  11. MYCOSTATIN [Concomitant]
     Indication: ANTIBIOTIC PROPHYLAXIS
     Dosage: UNK
     Route: 048
     Dates: start: 20110406
  12. RITUXAN [Concomitant]
     Indication: EPSTEIN-BARR VIRUS INFECTION
     Dosage: 700 MG, SINGLE
     Route: 042
     Dates: start: 20110518, end: 20110518
  13. RITUXAN [Concomitant]
     Dosage: 700 MG, SINGLE
     Route: 042
     Dates: start: 20110527, end: 20110527
  14. CLOBETASOL PROPIONATE [Concomitant]
     Indication: GRAFT VERSUS HOST DISEASE
     Dosage: UNK
     Route: 061
     Dates: start: 20110520
  15. VFEND [Concomitant]
     Indication: PROPHYLAXIS
     Dosage: 200 MG, 2X/DAY
     Route: 048
     Dates: start: 20110406, end: 20110527
  16. ANIDULAFUNGIN [Suspect]
     Dosage: 100 MG, 1X/DAY
     Dates: start: 20110528
  17. CALCIUMFOLINAT ^GRY^ [Concomitant]
     Indication: PROPHYLAXIS
     Dosage: 15 MG, 1X/DAY
     Route: 048
     Dates: start: 20110416, end: 20110517
  18. SANDIMMUNE [Concomitant]
     Indication: PROPHYLAXIS
     Dosage: 100 MG, 2X/DAY
     Route: 048
     Dates: start: 20110412
  19. METHYLPREDNISOLONE [Concomitant]
     Indication: GRAFT VERSUS HOST DISEASE
     Dosage: UNK
     Route: 042
     Dates: start: 20110506
  20. XYLOCAINE [Concomitant]
     Indication: MUCOSAL INFLAMMATION
     Dosage: UNK
     Route: 048
     Dates: start: 20110418
  21. LORAZEPAM [Concomitant]
     Indication: INSOMNIA
     Dosage: 1 MG, AS NEEDED
     Route: 048
     Dates: start: 20110406
  22. RITUXAN [Concomitant]
     Dosage: 700 MG, SINGLE
     Route: 042
     Dates: start: 20110603, end: 20110603
  23. CELLCEPT [Concomitant]
     Indication: GRAFT VERSUS HOST DISEASE
     Dosage: 1 G, UNK
     Route: 042
     Dates: start: 20110520
  24. MIRFULAN [Concomitant]
     Indication: GRAFT VERSUS HOST DISEASE
     Dosage: UNK
     Route: 061
  25. PANTOLOC ^NYCOMED^ [Concomitant]
     Indication: PROPHYLAXIS AGAINST GASTROINTESTINAL ULCER
     Dosage: 40 MG, 2X/DAY
     Dates: start: 20110406
  26. HEPARIN [Concomitant]
     Indication: PROPHYLAXIS
     Dosage: 5000 IU, 1X/DAY
     Route: 042
     Dates: start: 20110412
  27. FENISTIL [Concomitant]
     Dosage: UNK
     Dates: start: 20110601, end: 20110601
  28. LEVOFLOXACIN [Concomitant]
     Indication: ANTIBIOTIC PROPHYLAXIS
     Dosage: 500 MG, 1X/DAY
     Route: 042
     Dates: start: 20110601

REACTIONS (1)
  - MULTI-ORGAN FAILURE [None]
